FAERS Safety Report 21503691 (Version 1)
Quarter: 2022Q4

REPORT INFORMATION
  Report Type: Spontaneous
  Country: CN (occurrence: CN)
  Receive Date: 20221025
  Receipt Date: 20221025
  Transmission Date: 20230113
  Serious: Yes (Life-Threatening, Hospitalization)
  Sender: FDA-Public Use
  Company Number: CN-NOVARTISPH-NVSC2022CN239059

PATIENT
  Age: 77 Year
  Sex: Female
  Weight: 62 kg

DRUGS (4)
  1. GLIVEC [Suspect]
     Active Substance: IMATINIB MESYLATE
     Indication: Small intestine carcinoma
     Dosage: 400 MG, QD
     Route: 048
     Dates: start: 20220620, end: 20220804
  2. GLIVEC [Suspect]
     Active Substance: IMATINIB MESYLATE
     Indication: Gastrointestinal neoplasm
     Dosage: 300 MG, QD
     Route: 048
     Dates: start: 20220805, end: 20221005
  3. GLIVEC [Suspect]
     Active Substance: IMATINIB MESYLATE
     Indication: Neoplasm
  4. GLIVEC [Suspect]
     Active Substance: IMATINIB MESYLATE
     Indication: Small intestine operation

REACTIONS (17)
  - Myelosuppression [Recovering/Resolving]
  - Pelvic fluid collection [Recovering/Resolving]
  - Oedema [Recovering/Resolving]
  - Coagulopathy [Recovering/Resolving]
  - Thrombosis [Recovering/Resolving]
  - Pleural effusion [Recovering/Resolving]
  - Pericardial effusion [Recovering/Resolving]
  - Abdominal distension [Unknown]
  - Decreased appetite [Unknown]
  - Oedema peripheral [Unknown]
  - Intra-abdominal fluid collection [Unknown]
  - Anaemia [Unknown]
  - Platelet count decreased [Unknown]
  - Haemoglobin decreased [Unknown]
  - White blood cell count decreased [Unknown]
  - Neutrophil count decreased [Unknown]
  - Red blood cell count decreased [Unknown]

NARRATIVE: CASE EVENT DATE: 20220805
